FAERS Safety Report 26083316 (Version 2)
Quarter: 2025Q4

REPORT INFORMATION
  Report Type: Spontaneous
  Country: US (occurrence: US)
  Receive Date: 20251124
  Receipt Date: 20251126
  Transmission Date: 20260117
  Serious: Yes (Death, Other)
  Sender: INCYTE
  Company Number: US-INCYTE CORPORATION-2025IN013035

PATIENT
  Age: 70 Year

DRUGS (2)
  1. JAKAFI [Suspect]
     Active Substance: RUXOLITINIB
     Indication: Product used for unknown indication
     Dosage: 10 MILLIGRAM, BID
  2. COPIKTRA [Concomitant]
     Active Substance: DUVELISIB
     Indication: Angioimmunoblastic T-cell lymphoma
     Dosage: 15 MILLIGRAM, BID

REACTIONS (1)
  - Death [Fatal]
